FAERS Safety Report 9070493 (Version 3)
Quarter: 2014Q2

REPORT INFORMATION
  Report Type: Spontaneous
  Country: US (occurrence: US)
  Receive Date: 20130215
  Receipt Date: 20140404
  Transmission Date: 20141212
  Serious: Yes (Death, Hospitalization, Other)
  Sender: FDA-Public Use
  Company Number: US-B.I. PHARMACEUTICALS,INC./RIDGEFIELD-2013-BI-03936BP

PATIENT
  Age: 74 Year
  Sex: Female
  Weight: 63.5 kg

DRUGS (10)
  1. PRADAXA [Suspect]
     Indication: ATRIAL FIBRILLATION
     Dosage: 300 MG
     Route: 065
     Dates: start: 20110804, end: 20110808
  2. EXCEDRIN EXTRA STRENGTH [Concomitant]
     Route: 048
  3. ALIGN [Concomitant]
     Route: 048
  4. LEVBID [Concomitant]
     Route: 065
  5. CARDIZEM [Concomitant]
     Dosage: 60 MG
     Route: 048
  6. HYOMAX-SR [Concomitant]
     Route: 065
  7. ONDANSETRON [Concomitant]
     Route: 065
  8. FLECAINIDE [Concomitant]
     Route: 065
  9. CIPROFLOXACIN [Concomitant]
     Route: 065
  10. MIRALAX [Concomitant]
     Dosage: 17 MG
     Route: 048

REACTIONS (6)
  - Pulmonary alveolar haemorrhage [Fatal]
  - Respiratory failure [Unknown]
  - Haemorrhagic anaemia [Unknown]
  - Renal failure acute [Unknown]
  - Coagulopathy [Unknown]
  - Cardiac arrest [Unknown]
